FAERS Safety Report 5911943-1 (Version None)
Quarter: 2008Q4

REPORT INFORMATION
  Report Type: 
  Country: None (occurrence: None)
  Receive Date: 20081008
  Receipt Date: 20080929
  Transmission Date: 20090506
  Serious: Yes (Other)
  Sender: FDA-Public Use
  Company Number: PHHY2008FI23200

PATIENT
  Age: 84 Year
  Sex: Female

DRUGS (3)
  1. LESCOL [Suspect]
     Dosage: 80 MG/DAY
     Route: 048
     Dates: start: 20080910
  2. COZAAR [Concomitant]
  3. ORMOX [Concomitant]

REACTIONS (7)
  - ALANINE AMINOTRANSFERASE INCREASED [None]
  - BLOOD BILIRUBIN INCREASED [None]
  - BLOOD URINE PRESENT [None]
  - CHROMATURIA [None]
  - URINARY TRACT INFECTION [None]
  - VASCULAR GRAFT [None]
  - YELLOW SKIN [None]
